FAERS Safety Report 9301767 (Version 2)
Quarter: 2013Q2

REPORT INFORMATION
  Report Type: Spontaneous
  Country: FR (occurrence: FR)
  Receive Date: 20130521
  Receipt Date: 20130626
  Transmission Date: 20140414
  Serious: Yes (Other)
  Sender: FDA-Public Use
  Company Number: FR-JNJFOC-20130508286

PATIENT
  Age: 82 Year
  Sex: Male

DRUGS (2)
  1. NICORETTE MICROTAB 2MG [Suspect]
     Indication: SMOKING CESSATION THERAPY
     Dosage: 2 MG MICROTAB, 17 PIECES A DAY
     Route: 002
  2. NICORETTE MICROTAB 2MG [Suspect]
     Indication: SMOKING CESSATION THERAPY
     Dosage: 2 MG MICROTAB, 17 PIECES A DAY
     Route: 002

REACTIONS (3)
  - Nicotine dependence [Not Recovered/Not Resolved]
  - Intentional drug misuse [Unknown]
  - Fatigue [Not Recovered/Not Resolved]
